FAERS Safety Report 7296828-3 (Version None)
Quarter: 2011Q1

REPORT INFORMATION
  Report Type: 
  Country: None (occurrence: None)
  Receive Date: 20110216
  Receipt Date: 20101222
  Transmission Date: 20110831
  Serious: No
  Sender: FDA-Public Use
  Company Number: US-BAYER-2011-011424

PATIENT
  Sex: Female
  Weight: 77 kg

DRUGS (1)
  1. ALEVE [Suspect]
     Indication: TOOTHACHE
     Dosage: DAILY DOSE 6 DF
     Route: 048
     Dates: start: 20101215, end: 20101219

REACTIONS (2)
  - NO ADVERSE EVENT [None]
  - ABDOMINAL PAIN UPPER [None]
